FAERS Safety Report 13049872 (Version 2)
Quarter: 2016Q4

REPORT INFORMATION
  Report Type: Spontaneous
  Country: FR (occurrence: FR)
  Receive Date: 20161221
  Receipt Date: 20161223
  Transmission Date: 20170207
  Serious: Yes (Hospitalization)
  Sender: FDA-Public Use
  Company Number: FR-PACIRA PHARMACEUTICALS, INC.-2016DEPFR00706

PATIENT
  Age: 55 Year
  Sex: Female

DRUGS (3)
  1. PACLITAXEL. [Suspect]
     Active Substance: PACLITAXEL
     Indication: BREAST CANCER
     Dosage: WEEKLY
     Route: 042
     Dates: start: 20161118, end: 20161118
  2. CARBOPLATINE [Suspect]
     Active Substance: CARBOPLATIN
     Indication: BREAST CANCER
     Dosage: EVERY 3 WEEKS
     Route: 042
     Dates: start: 20161027
  3. DEPOCYT [Suspect]
     Active Substance: CYTARABINE
     Indication: BREAST CANCER
     Dosage: EVERY 3 WEEKS
     Route: 037
     Dates: start: 20160929, end: 20160929

REACTIONS (2)
  - Ischaemic stroke [Unknown]
  - Off label use [Unknown]

NARRATIVE: CASE EVENT DATE: 201611
